FAERS Safety Report 11843789 (Version 3)
Quarter: 2016Q1

REPORT INFORMATION
  Report Type: Report from Study
  Country: CA (occurrence: CA)
  Receive Date: 20151217
  Receipt Date: 20160212
  Transmission Date: 20160526
  Serious: Yes (Other)
  Sender: FDA-Public Use
  Company Number: CA-ROCHE-1678618

PATIENT
  Sex: Male

DRUGS (5)
  1. PANTHENOL [Concomitant]
     Active Substance: PANTHENOL
  2. AVASTIN [Suspect]
     Active Substance: BEVACIZUMAB
     Indication: BRAIN NEOPLASM MALIGNANT
     Route: 042
     Dates: start: 20151202
  3. ONDANSETRON [Concomitant]
     Active Substance: ONDANSETRON
     Dosage: AS REQUIRED
     Route: 065
  4. NASONEX [Concomitant]
     Active Substance: MOMETASONE FUROATE
  5. LOMUSTINE. [Concomitant]
     Active Substance: LOMUSTINE

REACTIONS (1)
  - Traumatic lung injury [Unknown]
